FAERS Safety Report 19426521 (Version 4)
Quarter: 2021Q4

REPORT INFORMATION
  Report Type: Spontaneous
  Country: JP (occurrence: JP)
  Receive Date: 20210617
  Receipt Date: 20211013
  Transmission Date: 20220303
  Serious: Yes (Hospitalization, Other)
  Sender: FDA-Public Use
  Company Number: NVSJ2021JP008767

PATIENT
  Age: 56 Year
  Sex: Female

DRUGS (14)
  1. METFORMIN HYDROCHLORIDE\VILDAGLIPTIN [Suspect]
     Active Substance: METFORMIN HYDROCHLORIDE\VILDAGLIPTIN
     Indication: Type 2 diabetes mellitus
     Dosage: 1 DF: VILDAGLIPTIN 50MG,METFORMIN HYDROCHLORIDE 500MG, BID
     Route: 048
  2. METFORMIN HYDROCHLORIDE\VILDAGLIPTIN [Suspect]
     Active Substance: METFORMIN HYDROCHLORIDE\VILDAGLIPTIN
     Dosage: 1DF: VILDAGLIPTIN 50MG,METFORMIN HYDROCHLORIDE 500MG, 50 DF
     Route: 048
     Dates: start: 20210517, end: 20210517
  3. METFORMIN HYDROCHLORIDE\VILDAGLIPTIN [Suspect]
     Active Substance: METFORMIN HYDROCHLORIDE\VILDAGLIPTIN
     Dosage: 1 DF: VILDAGLIPTIN 50MG,METFORMIN HYDROCHLORIDE 500MG, BID
     Route: 048
  4. MEQUITAZINE [Concomitant]
     Active Substance: MEQUITAZINE
     Indication: Seasonal allergy
     Dosage: 3 MG, BID
     Route: 048
  5. BILASTINE [Concomitant]
     Active Substance: BILASTINE
     Indication: Seasonal allergy
     Dosage: 20 MG, QD
     Route: 048
  6. BENIDIPINE HYDROCHLORIDE [Concomitant]
     Active Substance: BENIDIPINE HYDROCHLORIDE
     Indication: Hypertension
     Dosage: 4 MG, QD
     Route: 048
  7. BLONANSERIN [Concomitant]
     Active Substance: BLONANSERIN
     Indication: Schizophrenia
     Dosage: 4 MG, BID
     Route: 048
  8. DIAZEPAM [Concomitant]
     Active Substance: DIAZEPAM
     Indication: Schizophrenia
     Dosage: 2 MG, TID
     Route: 048
  9. LORAZEPAM [Concomitant]
     Active Substance: LORAZEPAM
     Indication: Schizophrenia
     Dosage: 0.5 MG, QD
     Route: 048
  10. CALCIUM POLYCARBOPHIL [Concomitant]
     Active Substance: CALCIUM POLYCARBOPHIL
     Indication: Irritable bowel syndrome
     Dosage: 1.2 G, TID
     Route: 048
  11. TEPRENONE [Concomitant]
     Active Substance: TEPRENONE
     Indication: Irritable bowel syndrome
     Dosage: 50 MG, TID
     Route: 048
  12. LOPERAMIDE [Concomitant]
     Active Substance: LOPERAMIDE
     Indication: Irritable bowel syndrome
     Dosage: 1 MG, BID
     Route: 048
  13. HERBALS [Concomitant]
     Active Substance: HERBALS
     Indication: Irritable bowel syndrome
     Dosage: 3 G, TID
     Route: 048
  14. BIOSMIN [Concomitant]
     Indication: Irritable bowel syndrome
     Dosage: 1 DF, TID
     Route: 048

REACTIONS (13)
  - Lactic acidosis [Unknown]
  - Nausea [Unknown]
  - Vomiting [Unknown]
  - Dizziness [Unknown]
  - Pyrexia [Unknown]
  - Sinus tachycardia [Unknown]
  - Kussmaul respiration [Unknown]
  - Physical deconditioning [Unknown]
  - Acute kidney injury [Not Recovered/Not Resolved]
  - Blood creatinine increased [Unknown]
  - Pneumonia aspiration [Not Recovered/Not Resolved]
  - Suicide attempt [Unknown]
  - Intentional overdose [Unknown]

NARRATIVE: CASE EVENT DATE: 20210517
